FAERS Safety Report 16851107 (Version 1)
Quarter: 2019Q3

REPORT INFORMATION
  Report Type: Spontaneous
  Country: US (occurrence: US)
  Receive Date: 20190925
  Receipt Date: 20190925
  Transmission Date: 20191005
  Serious: Yes (Other)
  Sender: FDA-Public Use
  Company Number: US-PFIZER INC-2019408873

PATIENT
  Age: 60 Year
  Sex: Female

DRUGS (1)
  1. GENOTROPIN MQ [Suspect]
     Active Substance: SOMATROPIN
     Dosage: 1 MG, DAILY

REACTIONS (5)
  - Autism spectrum disorder [Unknown]
  - Thyroxine free decreased [Unknown]
  - Thyroiditis chronic [Unknown]
  - Pituitary-dependent Cushing^s syndrome [Unknown]
  - Oedema peripheral [Unknown]
